FAERS Safety Report 7488448-2 (Version None)
Quarter: 2011Q2

REPORT INFORMATION
  Report Type: 
  Country: None (occurrence: None)
  Receive Date: 20110518
  Receipt Date: 20101227
  Transmission Date: 20111010
  Serious: Yes (Other)
  Sender: FDA-Public Use
  Company Number: US-BAYER-201018580NA

PATIENT
  Age: 25 Year
  Sex: Female
  Weight: 95 kg

DRUGS (7)
  1. PERCOCET [Concomitant]
     Indication: ABDOMINAL PAIN
  2. MOTRIN [Concomitant]
     Indication: ANALGESIC THERAPY
     Dosage: UNK
  3. VICODIN [Concomitant]
  4. ACETAMINOPHEN [Concomitant]
     Indication: ANALGESIC THERAPY
  5. REGLAN [Concomitant]
  6. YAZ [Suspect]
     Indication: PRODUCT USED FOR UNKNOWN INDICATION
     Dosage: UNK UNK, UNK
     Route: 048
     Dates: end: 20090427
  7. AUGMENTIN [Concomitant]

REACTIONS (6)
  - PAIN [None]
  - CHOLELITHIASIS [None]
  - VOMITING [None]
  - DIARRHOEA [None]
  - ABDOMINAL PAIN [None]
  - NAUSEA [None]
